FAERS Safety Report 5349495-X (Version None)
Quarter: 2007Q2

REPORT INFORMATION
  Report Type: 
  Country: None (occurrence: None)
  Receive Date: 20070607
  Receipt Date: 20070528
  Transmission Date: 20071010
  Serious: No
  Sender: FDA-Public Use
  Company Number: MX-ELI_LILLY_AND_COMPANY-MX200705007623

PATIENT
  Sex: Male

DRUGS (1)
  1. CIALIS [Suspect]
     Dosage: UNK, AS NEEDED

REACTIONS (1)
  - EYE DISORDER [None]
